FAERS Safety Report 16397903 (Version 6)
Quarter: 2025Q3

REPORT INFORMATION
  Report Type: Spontaneous
  Country: EU (occurrence: EU)
  Receive Date: 20190606
  Receipt Date: 20250802
  Transmission Date: 20251020
  Serious: Yes (Hospitalization, Other)
  Sender: AUROBINDO
  Company Number: EU-AUROBINDO-AUR-APL-2019-031435

PATIENT
  Age: 77 Year
  Sex: Male

DRUGS (4)
  1. SIMVASTATIN [Suspect]
     Active Substance: SIMVASTATIN
     Indication: Dyslipidaemia
     Dosage: 40 MILLIGRAM, ONCE A DAY,40 MG, QD
     Route: 048
  2. OLMESARTAN [Suspect]
     Active Substance: OLMESARTAN
     Indication: Hypertension
     Dosage: 20 MILLIGRAM, ONCE A DAY
     Route: 065
  3. AMLODIPINE [Suspect]
     Active Substance: AMLODIPINE BESYLATE
     Indication: Hypertension
     Dosage: 5 MILLIGRAM, ONCE A DAY,5 MG, QD
     Route: 065
  4. AMLODIPINE\OLMESARTAN [Suspect]
     Active Substance: AMLODIPINE\OLMESARTAN
     Indication: Hypertension
     Route: 065

REACTIONS (15)
  - Acute kidney injury [Recovered/Resolved]
  - Renal disorder [Recovered/Resolved]
  - Hypokalaemia [Recovered/Resolved]
  - Metabolic acidosis [Recovered/Resolved]
  - Orthostatic hypotension [Recovered/Resolved]
  - Abdominal lymphadenopathy [Unknown]
  - Gastroenteritis [Recovered/Resolved]
  - Gastrointestinal disorder [Recovered/Resolved]
  - Atrophy [Recovered/Resolved]
  - Intestinal villi atrophy [Recovered/Resolved]
  - Weight decreased [Recovered/Resolved]
  - Vomiting [Recovered/Resolved]
  - Diarrhoea [Recovered/Resolved]
  - Functional gastrointestinal disorder [Recovered/Resolved]
  - Hypotension [Unknown]
